FAERS Safety Report 6388884-1 (Version None)
Quarter: 2009Q4

REPORT INFORMATION
  Report Type: 
  Country: None (occurrence: None)
  Receive Date: 20091001
  Receipt Date: 20090918
  Transmission Date: 20100525
  Serious: Yes (Hospitalization)
  Sender: FDA-Public Use
  Company Number: 8052434

PATIENT
  Age: 76 Year
  Sex: Female

DRUGS (5)
  1. KEPPRA [Suspect]
     Indication: PARTIAL SEIZURES
     Dosage: 500 MG 2/D PO
     Route: 048
     Dates: start: 20090718, end: 20090724
  2. KARDEGIC /00002703/ [Concomitant]
  3. OFLOCET /00731801/ [Concomitant]
  4. NITRODERM [Concomitant]
  5. LOVENOX [Concomitant]

REACTIONS (2)
  - ANAEMIA MACROCYTIC [None]
  - PANCYTOPENIA [None]
